FAERS Safety Report 15041268 (Version 1)
Quarter: 2018Q2

REPORT INFORMATION
  Report Type: Report from Study
  Country: ES (occurrence: ES)
  Receive Date: 20180621
  Receipt Date: 20180621
  Transmission Date: 20180711
  Serious: Yes (Hospitalization)
  Sender: FDA-Public Use
  Company Number: ES-TEVA-2018-ES-908914

PATIENT
  Age: 3 Year
  Sex: Female

DRUGS (7)
  1. FLUCONAZOL (2432A) [Concomitant]
     Active Substance: FLUCONAZOLE
     Indication: OPPORTUNISTIC INFECTION PROPHYLAXIS
     Dosage: 80 MILLIGRAM DAILY;
     Route: 048
     Dates: start: 20170808
  2. ZOVIRAX  400 MG/5 ML SUSPENSION ORAL , 1 FRASCO DE 200 ML [Concomitant]
     Indication: OPPORTUNISTIC INFECTION PROPHYLAXIS
     Route: 048
     Dates: start: 20170807
  3. ONCASPAR [Suspect]
     Active Substance: PEGASPARGASE
     Indication: ACUTE LYMPHOCYTIC LEUKAEMIA
     Dosage: 590 IU (INTERNATIONAL UNIT) DAILY;
     Route: 042
     Dates: start: 20170901, end: 20170901
  4. VINCRISTINA SULFATO (809SU) [Suspect]
     Active Substance: VINCRISTINE SULFATE
     Indication: ACUTE LYMPHOCYTIC LEUKAEMIA
     Dosage: .9 MILLIGRAM DAILY;
     Route: 042
     Dates: start: 20170828, end: 20170828
  5. SEPTRIN PEDIATRICO 8 MG/40 MG/ML SUSPENSION ORAL , 1 FRASCO DE 100 ML [Concomitant]
     Active Substance: SULFAMETHOXAZOLE\TRIMETHOPRIM
     Indication: OPPORTUNISTIC INFECTION PROPHYLAXIS
     Route: 048
     Dates: start: 20170807
  6. DAUNORUBICINA HIDROCLORURO (177CH) [Suspect]
     Active Substance: DAUNORUBICIN HYDROCHLORIDE
     Indication: ACUTE LYMPHOCYTIC LEUKAEMIA
     Dosage: 17.6 MILLIGRAM DAILY;
     Route: 042
     Dates: start: 20170828, end: 20170828
  7. METILPREDNISOLONA (888A) [Suspect]
     Active Substance: METHYLPREDNISOLONE
     Indication: ACUTE LYMPHOCYTIC LEUKAEMIA
     Route: 042
     Dates: start: 20170807, end: 20170904

REACTIONS (3)
  - Febrile neutropenia [Recovered/Resolved]
  - Neuralgia [Recovered/Resolved]
  - Gallbladder fibrosis [Recovered/Resolved]

NARRATIVE: CASE EVENT DATE: 20170904
